FAERS Safety Report 24308771 (Version 1)
Quarter: 2024Q3

REPORT INFORMATION
  Report Type: Spontaneous
  Country: IT (occurrence: IT)
  Receive Date: 20240911
  Receipt Date: 20240911
  Transmission Date: 20241016
  Serious: Yes (Death, Other)
  Sender: PURDUE
  Company Number: IT-OPELLA-2023OHG006874

PATIENT
  Age: 23 Year
  Sex: Female

DRUGS (6)
  1. MORPHINE SULFATE [Suspect]
     Active Substance: MORPHINE SULFATE
     Indication: Substance use
     Dosage: UNK
     Route: 042
  2. CODEINE [Suspect]
     Active Substance: CODEINE
     Indication: Substance use
     Dosage: UNK
     Route: 065
  3. DEXTROMETHORPHAN HYDROBROMIDE [Suspect]
     Active Substance: DEXTROMETHORPHAN HYDROBROMIDE
     Indication: Substance use
     Dosage: UNK
     Route: 042
  4. DEXTROMETHORPHAN HYDROBROMIDE [Suspect]
     Active Substance: DEXTROMETHORPHAN HYDROBROMIDE
     Indication: Product used for unknown indication
     Dosage: 1 TOTAL
     Route: 042
     Dates: start: 201104, end: 201104
  5. CAFFEINE [Suspect]
     Active Substance: CAFFEINE
     Indication: Product used for unknown indication
     Dosage: UNK
     Route: 042
  6. HEROIN [Suspect]
     Active Substance: DIAMORPHINE
     Indication: Product used for unknown indication
     Dosage: 1 TOTAL
     Route: 042
     Dates: start: 201104, end: 201104

REACTIONS (6)
  - Overdose [Fatal]
  - Drug abuse [Fatal]
  - Toxicity to various agents [Fatal]
  - Drug interaction [Fatal]
  - Sudden death [Unknown]
  - No adverse event [Unknown]

NARRATIVE: CASE EVENT DATE: 20110401
